FAERS Safety Report 10239052 (Version 3)
Quarter: 2014Q3

REPORT INFORMATION
  Report Type: Spontaneous
  Country: IT (occurrence: IT)
  Receive Date: 20140616
  Receipt Date: 20140902
  Transmission Date: 20150326
  Serious: Yes (Hospitalization)
  Sender: FDA-Public Use
  Company Number: IT-PFIZER INC-2014163576

PATIENT
  Age: 25 Year
  Sex: Female

DRUGS (3)
  1. PARACETAMOL [Suspect]
     Active Substance: ACETAMINOPHEN
     Dosage: 16 G, TOTAL DOSE
     Route: 048
     Dates: start: 20140604, end: 20140604
  2. XANAX [Suspect]
     Active Substance: ALPRAZOLAM
     Dosage: 20 ML, TOTAL DOSE
     Route: 048
     Dates: start: 20140604, end: 20140604
  3. OPTALIDON /ITA/ [Suspect]
     Active Substance: ACETAMINOPHEN\CAFFEINE OR CAFFEINE\PROPYPHENAZONE OR IBUPROFEN
     Dosage: 10 DF, TOTAL DOSE
     Route: 048
     Dates: start: 20140604, end: 20140604

REACTIONS (3)
  - Loss of consciousness [Recovering/Resolving]
  - Hepatic function abnormal [Recovering/Resolving]
  - Drug abuse [Recovering/Resolving]

NARRATIVE: CASE EVENT DATE: 20140604
